FAERS Safety Report 15187729 (Version 1)
Quarter: 2018Q3

REPORT INFORMATION
  Report Type: Spontaneous
  Country: US (occurrence: US)
  Receive Date: 20180724
  Receipt Date: 20180724
  Transmission Date: 20181010
  Serious: No
  Sender: FDA-Public Use
  Company Number: US-009507513-1807USA008750

PATIENT
  Sex: Female

DRUGS (4)
  1. JANUVIA [Suspect]
     Active Substance: SITAGLIPTIN PHOSPHATE
     Indication: DIABETES MELLITUS
     Dosage: ONE TABLET ONCE PER DAY
     Route: 048
     Dates: start: 201711
  2. ESTROGEN NOS [Concomitant]
     Active Substance: ESTROGENS
     Dosage: UNK; LOW DOSE
     Dates: start: 201711
  3. VALSARTAN. [Concomitant]
     Active Substance: VALSARTAN
     Indication: HYPERTENSION
     Dosage: UNK
     Dates: start: 201711
  4. LOSARTAN. [Concomitant]
     Active Substance: LOSARTAN
     Indication: HYPERTENSION
     Dosage: UNK
     Dates: start: 201711

REACTIONS (2)
  - Fungal infection [Not Recovered/Not Resolved]
  - Alopecia [Not Recovered/Not Resolved]
